FAERS Safety Report 5840109-9 (Version None)
Quarter: 2008Q3

REPORT INFORMATION
  Report Type: 
  Country: None (occurrence: None)
  Receive Date: 20080811
  Receipt Date: 20080808
  Transmission Date: 20090109
  Serious: Yes (Hospitalization)
  Sender: FDA-Public Use
  Company Number: B0532499A

PATIENT
  Age: 45 Year
  Sex: Female
  Weight: 64 kg

DRUGS (2)
  1. TOPOTECAN [Suspect]
     Dosage: .75MGM2 CYCLIC
     Route: 042
     Dates: start: 20080724
  2. CISPLATIN [Suspect]
     Dosage: 50MGM2 CYCLIC
     Route: 042
     Dates: start: 20080724

REACTIONS (1)
  - CONVULSION [None]
